FAERS Safety Report 7777141-4 (Version None)
Quarter: 2011Q3

REPORT INFORMATION
  Report Type: 
  Country: None (occurrence: None)
  Receive Date: 20110922
  Receipt Date: 20110912
  Transmission Date: 20111222
  Serious: Yes (Other)
  Sender: FDA-Public Use
  Company Number: 2011SP034767

PATIENT
  Age: 23 Year
  Sex: Female

DRUGS (1)
  1. IMPLANON [Suspect]
     Indication: PRODUCT USED FOR UNKNOWN INDICATION
     Dosage: 1 DF

REACTIONS (5)
  - BACK PAIN [None]
  - PELVIC PAIN [None]
  - POLYCYSTIC OVARIES [None]
  - MENSTRUATION IRREGULAR [None]
  - COMPLICATION OF DEVICE REMOVAL [None]
